FAERS Safety Report 10067378 (Version 2)
Quarter: 2014Q2

REPORT INFORMATION
  Report Type: Spontaneous
  Country: IT (occurrence: None)
  Receive Date: 20140407
  Receipt Date: 20140523
  Transmission Date: 20141212
  Serious: Yes (Other)
  Sender: FDA-Public Use
  Company Number: FK201401151

PATIENT
  Age: 74 Year
  Sex: Female
  Weight: 64 kg

DRUGS (2)
  1. CYTARABINE (MANUFACTURER UNKNOWN) (CYTARABINE) (CYTARABINE) [Suspect]
     Indication: NON-HODGKIN^S LYMPHOMA
     Dosage: TOTAL, INTRAVENOUS (NOT OTHERWISE SPECIFIED)
     Route: 042
     Dates: start: 20140313, end: 20140313
  2. ACYCLOVIR (ACICLOVIR) (ACICLOVIR) [Concomitant]

REACTIONS (1)
  - Depressed level of consciousness [None]
